FAERS Safety Report 5842195-9 (Version None)
Quarter: 2008Q3

REPORT INFORMATION
  Report Type: 
  Country: None (occurrence: None)
  Receive Date: 20080812
  Receipt Date: 20080805
  Transmission Date: 20090109
  Serious: Yes (Other)
  Sender: FDA-Public Use
  Company Number: US-ASTRAZENECA-2008UW14546

PATIENT
  Age: 22460 Day
  Sex: Male
  Weight: 89.8 kg

DRUGS (10)
  1. SYMBICORT [Suspect]
     Indication: DYSPNOEA
     Route: 055
     Dates: start: 20070808
  2. SPIRIVA [Concomitant]
     Dates: start: 20070101
  3. ADVAIR DISKUS 100/50 [Concomitant]
     Dates: start: 20070101
  4. ALBUTEROL [Concomitant]
     Dates: start: 20070101
  5. LIPITOR [Concomitant]
     Dates: start: 20070101
  6. ZETIA [Concomitant]
     Dates: start: 20070101
  7. ACIPHEX [Concomitant]
     Dates: start: 20070101
  8. SERZONE [Concomitant]
     Dates: start: 20070101
  9. MIRAPEX [Concomitant]
     Indication: RESTLESS LEGS SYNDROME
     Dates: start: 20070101
  10. LISINOPRIL [Concomitant]
     Dates: start: 20070101

REACTIONS (2)
  - CEREBROVASCULAR ACCIDENT [None]
  - TACHYCARDIA [None]
